FAERS Safety Report 14923947 (Version 1)
Quarter: 2018Q2

REPORT INFORMATION
  Report Type: Spontaneous
  Country: US (occurrence: US)
  Receive Date: 20180522
  Receipt Date: 20180522
  Transmission Date: 20180711
  Serious: No
  Sender: FDA-Public Use
  Company Number: US-PFIZER INC-2018205099

PATIENT
  Age: 56 Year
  Sex: Female
  Weight: 67.13 kg

DRUGS (6)
  1. LYRICA [Suspect]
     Active Substance: PREGABALIN
     Dosage: 75 MG, 3X/DAY (75 MG CAPSULE THREE TIMES A DAY)
     Dates: end: 20180508
  2. LYRICA [Suspect]
     Active Substance: PREGABALIN
     Indication: FIBROMYALGIA
     Dosage: 50 MG, UNK (STARTED OUT ON 50 MG)
  3. DUEXIS [Concomitant]
     Active Substance: FAMOTIDINE\IBUPROFEN
     Dosage: 800 MG, 1X/DAY  (WENT BACK TO TAKING DUEXIS ONCE A DAY)
  4. LYRICA [Suspect]
     Active Substance: PREGABALIN
     Dosage: 75 MG, UNK (INCREASED IT TO 75 MG)
  5. DUEXIS [Concomitant]
     Active Substance: FAMOTIDINE\IBUPROFEN
     Dosage: 800 MG, 3X/DAY (800 MG THREE TIMES A DAY)
  6. DUEXIS [Concomitant]
     Active Substance: FAMOTIDINE\IBUPROFEN
     Indication: INFLAMMATION
     Dosage: 800 MG, DAILY (800 MG A DAY)

REACTIONS (6)
  - Pain [Unknown]
  - Abdominal distension [Recovered/Resolved]
  - Feeling abnormal [Recovered/Resolved]
  - Intentional product misuse [Unknown]
  - Headache [Recovered/Resolved]
  - Drug ineffective [Unknown]

NARRATIVE: CASE EVENT DATE: 20180508
